FAERS Safety Report 10493930 (Version 7)
Quarter: 2015Q2

REPORT INFORMATION
  Report Type: Report from Study
  Country: US (occurrence: US)
  Receive Date: 20141003
  Receipt Date: 20150528
  Transmission Date: 20150821
  Serious: Yes (Hospitalization)
  Sender: FDA-Public Use
  Company Number: US-BIOGENIDEC-2014BI097483

PATIENT
  Age: 36 Year
  Sex: Female
  Weight: 63 kg

DRUGS (4)
  1. DICLOFENAC SODIUM. [Concomitant]
     Active Substance: DICLOFENAC SODIUM
     Indication: PAIN
     Dates: start: 201401
  2. TYSABRI [Suspect]
     Active Substance: NATALIZUMAB
     Indication: RELAPSING-REMITTING MULTIPLE SCLEROSIS
     Route: 042
     Dates: start: 20121129
  3. VYVANSE [Concomitant]
     Active Substance: LISDEXAMFETAMINE DIMESYLATE
     Indication: PAIN
     Dates: start: 20140505
  4. NIRAVAM [Concomitant]
     Active Substance: ALPRAZOLAM
     Indication: PAIN
     Dates: start: 20140505

REACTIONS (1)
  - Radial nerve palsy [Recovered/Resolved]

NARRATIVE: CASE EVENT DATE: 20140917
